FAERS Safety Report 7585653-1 (Version None)
Quarter: 2011Q2

REPORT INFORMATION
  Report Type: 
  Country: None (occurrence: None)
  Receive Date: 20110628
  Receipt Date: 20110628
  Transmission Date: 20111010
  Serious: Yes (Disabling, Other)
  Sender: FDA-Public Use
  Company Number: None

PATIENT
  Age: 32 Year
  Sex: Male

DRUGS (1)
  1. LANTUS [Suspect]
     Indication: DIABETES MELLITUS

REACTIONS (2)
  - BLINDNESS [None]
  - DRUG INEFFECTIVE [None]
